FAERS Safety Report 6274628-0 (Version None)
Quarter: 2009Q3

REPORT INFORMATION
  Report Type: 
  Country: None (occurrence: None)
  Receive Date: 20090717
  Receipt Date: 20090430
  Transmission Date: 20100115
  Serious: Yes (Other)
  Sender: FDA-Public Use
  Company Number: ADE#09-067

PATIENT
  Age: 13 Year
  Sex: Female

DRUGS (1)
  1. ZONISAMIDE [Suspect]
     Indication: CONVULSION
     Dosage: 1 CAP, AM, 2 CAPS, PM

REACTIONS (6)
  - CONVULSION [None]
  - DEPRESSED MOOD [None]
  - DRUG INEFFECTIVE [None]
  - FALL [None]
  - FOREIGN BODY TRAUMA [None]
  - HEAD INJURY [None]
